FAERS Safety Report 16958876 (Version 1)
Quarter: 2019Q4

REPORT INFORMATION
  Report Type: Spontaneous
  Country: GB (occurrence: GB)
  Receive Date: 20191024
  Receipt Date: 20191024
  Transmission Date: 20200122
  Serious: Yes (Hospitalization)
  Sender: FDA-Public Use
  Company Number: GB-ALLERGAN-1942750US

PATIENT
  Sex: Female

DRUGS (2)
  1. EVOREL [Concomitant]
  2. NITROGLYCERIN - BP [Suspect]
     Active Substance: NITROGLYCERIN
     Indication: HAEMORRHOIDS
     Route: 061

REACTIONS (8)
  - Malaise [Recovered/Resolved]
  - Hot flush [Recovered/Resolved]
  - Blood lactic acid increased [Recovered/Resolved]
  - Headache [Recovered/Resolved]
  - Tachycardia [Recovered/Resolved]
  - Vomiting [Recovered/Resolved]
  - Nausea [Recovered/Resolved]
  - Product use in unapproved indication [Unknown]
